FAERS Safety Report 6181792-0 (Version None)
Quarter: 2009Q2

REPORT INFORMATION
  Report Type: 
  Country: None (occurrence: None)
  Receive Date: 20090504
  Receipt Date: 20090421
  Transmission Date: 20091009
  Serious: Yes (Hospitalization)
  Sender: FDA-Public Use
  Company Number: 2009AL002397

PATIENT
  Age: 78 Year
  Sex: Female

DRUGS (10)
  1. DICLOXACILLIN [Suspect]
     Indication: OSTEOARTHRITIS
     Dosage: 75 MG; QD; PO
     Route: 048
     Dates: start: 20050101
  2. FOLITHROM [Concomitant]
  3. PIRETANIDE [Concomitant]
  4. RAMIPRIL [Concomitant]
  5. CANDESARTAN [Concomitant]
  6. LEVOTHYROXINE SODIUM [Concomitant]
  7. AMIODARONE [Concomitant]
  8. VERAPAMIL [Concomitant]
  9. OMEPRAZOLE [Concomitant]
  10. DIGITOXIN TAB [Concomitant]

REACTIONS (5)
  - ANAL HAEMORRHAGE [None]
  - DIVERTICULUM [None]
  - DRUG INTERACTION [None]
  - ENDOSCOPY UPPER GASTROINTESTINAL TRACT ABNORMAL [None]
  - GASTRITIS [None]
